FAERS Safety Report 4823933-0 (Version None)
Quarter: 2005Q4

REPORT INFORMATION
  Report Type: 
  Country: None (occurrence: None)
  Receive Date: 20051109
  Receipt Date: 20051028
  Transmission Date: 20060501
  Serious: Yes (Other)
  Sender: FDA-Public Use
  Company Number: US-SANOFI-SYNTHELABO-A03200503497

PATIENT
  Sex: Male
  Weight: 87.1 kg

DRUGS (8)
  1. PLAVIX [Suspect]
     Indication: STENT PLACEMENT
     Route: 048
     Dates: start: 20050826
  2. GEMFIBROZIL [Suspect]
     Indication: DRUG USE FOR UNKNOWN INDICATION
     Dosage: UNK
     Route: 048
     Dates: start: 20050826
  3. SIMVASTATIN [Suspect]
     Indication: DRUG USE FOR UNKNOWN INDICATION
     Route: 048
     Dates: start: 20050826, end: 20051027
  4. LISINOPRIL [Concomitant]
     Route: 048
  5. METOPROLOL [Concomitant]
     Dosage: UNK
     Route: 048
  6. ASPIRIN [Concomitant]
     Route: 048
  7. HUMALOG [Concomitant]
     Dosage: UNK
     Route: 058
  8. LANTUS [Concomitant]
     Dosage: UNK
     Route: 058

REACTIONS (8)
  - BLOOD CREATINE PHOSPHOKINASE INCREASED [None]
  - DYSURIA [None]
  - HAEMORRHAGE URINARY TRACT [None]
  - MUSCLE DISORDER [None]
  - MUSCLE SPASMS [None]
  - POLLAKIURIA [None]
  - PROTEIN URINE PRESENT [None]
  - RED BLOOD CELL ABNORMALITY [None]
